FAERS Safety Report 10180012 (Version 1)
Quarter: 2014Q2

REPORT INFORMATION
  Report Type: Spontaneous
  Country: US (occurrence: US)
  Receive Date: 20140519
  Receipt Date: 20140519
  Transmission Date: 20141212
  Serious: No
  Sender: FDA-Public Use
  Company Number: US-BRISTOL-MYERS SQUIBB COMPANY-20227872

PATIENT
  Sex: Male

DRUGS (1)
  1. BARACLUDE TABS [Suspect]
     Indication: CHRONIC HEPATITIS B
     Dosage: 1DF:3TABS

REACTIONS (1)
  - Rash macular [Recovered/Resolved]
